FAERS Safety Report 8050915-0 (Version None)
Quarter: 2012Q1

REPORT INFORMATION
  Report Type: 
  Country: None (occurrence: None)
  Receive Date: 20120117
  Receipt Date: 20120109
  Transmission Date: 20120608
  Serious: Yes (Disabling, Other)
  Sender: FDA-Public Use
  Company Number: PHHY2012SE001915

PATIENT
  Age: 70 Year
  Sex: Female

DRUGS (3)
  1. MIRTAZAPINE [Concomitant]
     Indication: DEPRESSION
  2. EXELON [Suspect]
     Indication: MEMORY IMPAIRMENT
     Dosage: 9.5MG/24 HOURS
     Route: 062
  3. OXAZEPAM [Concomitant]
     Indication: ANXIETY

REACTIONS (5)
  - ASTHENIA [None]
  - TREMOR [None]
  - DYSGRAPHIA [None]
  - MOVEMENT DISORDER [None]
  - FATIGUE [None]
